FAERS Safety Report 7552389-2 (Version None)
Quarter: 2011Q2

REPORT INFORMATION
  Report Type: 
  Country: None (occurrence: None)
  Receive Date: 20110616
  Receipt Date: 20090528
  Transmission Date: 20111010
  Serious: Yes (Death, Other)
  Sender: FDA-Public Use
  Company Number: PHHY2009IE07557

PATIENT
  Sex: Female

DRUGS (7)
  1. PROCYCLIDINE HYDROCHLORIDE 2MG TAB [Concomitant]
     Dosage: 5 MG, QD
  2. INSULIN [Concomitant]
     Dosage: UNK
  3. CLOZAPINE [Suspect]
     Indication: SCHIZOPHRENIA
     Dosage: 500 MG, UNK
     Route: 048
     Dates: start: 20060824
  4. GLUCOPHAGE [Concomitant]
     Dosage: UNK
  5. ANTIHYPERTENSIVES [Concomitant]
     Indication: HYPERTENSION
  6. AMISULPRIDE [Concomitant]
     Indication: PSYCHOTIC DISORDER
     Dosage: 600 MG, UNK
     Route: 048
  7. ASPIRIN [Concomitant]
     Dosage: UNK

REACTIONS (6)
  - LOSS OF CONSCIOUSNESS [None]
  - ACUTE RESPIRATORY FAILURE [None]
  - NAUSEA [None]
  - VOMITING [None]
  - RESPIRATORY DISTRESS [None]
  - PNEUMONIA ASPIRATION [None]
